FAERS Safety Report 24823889 (Version 1)
Quarter: 2025Q1

REPORT INFORMATION
  Report Type: Spontaneous
  Country: US (occurrence: US)
  Receive Date: 20250109
  Receipt Date: 20250109
  Transmission Date: 20250408
  Serious: No
  Sender: ALKEM
  Company Number: US-ALKEM LABORATORIES LIMITED-US-ALKEM-2024-12421

PATIENT
  Age: 58 Year
  Sex: Female

DRUGS (1)
  1. DEFERASIROX [Suspect]
     Active Substance: DEFERASIROX
     Indication: Hereditary haemochromatosis
     Route: 065

REACTIONS (3)
  - Appetite disorder [Unknown]
  - Fatigue [Unknown]
  - Pyrexia [Unknown]
